FAERS Safety Report 11516771 (Version 1)
Quarter: 2015Q3

REPORT INFORMATION
  Report Type: Report from Study
  Country: US (occurrence: US)
  Receive Date: 20150917
  Receipt Date: 20150917
  Transmission Date: 20151125
  Serious: Yes (Hospitalization)
  Sender: FDA-Public Use
  Company Number: US-BIOGENIDEC-2015BI124176

PATIENT
  Age: 57 Year
  Sex: Female

DRUGS (1)
  1. AVONEX [Suspect]
     Active Substance: INTERFERON BETA-1A
     Indication: MULTIPLE SCLEROSIS
     Route: 030
     Dates: start: 19980301

REACTIONS (11)
  - Atrial fibrillation [Unknown]
  - Multiple sclerosis relapse [Recovered/Resolved]
  - Malaise [Unknown]
  - Haemorrhage [Unknown]
  - Urinary tract infection [Unknown]
  - Gastrectomy [Recovered/Resolved with Sequelae]
  - Nasopharyngitis [Recovered/Resolved]
  - Gallbladder disorder [Recovered/Resolved]
  - Bladder dysfunction [Unknown]
  - Dysphagia [Unknown]
  - Coagulation time prolonged [Unknown]

NARRATIVE: CASE EVENT DATE: 2014
